FAERS Safety Report 19628384 (Version 3)
Quarter: 2021Q4

REPORT INFORMATION
  Report Type: Spontaneous
  Country: ES (occurrence: ES)
  Receive Date: 20210729
  Receipt Date: 20211102
  Transmission Date: 20220303
  Serious: Yes (Death, Other)
  Sender: FDA-Public Use
  Company Number: ES-ROCHE-2875249

PATIENT
  Age: 60 Year
  Sex: Female

DRUGS (2)
  1. ERLOTINIB [Suspect]
     Active Substance: ERLOTINIB
     Indication: Product used for unknown indication
     Route: 048
     Dates: start: 20190215
  2. AVASTIN [Suspect]
     Active Substance: BEVACIZUMAB
     Indication: Product used for unknown indication
     Dosage: 1395 MG, OTHER (ONCE IN 15 DAYS)
     Route: 065
     Dates: start: 20190215

REACTIONS (3)
  - Corneal toxicity [Unknown]
  - Acute myocardial infarction [Fatal]
  - Skin toxicity [Unknown]

NARRATIVE: CASE EVENT DATE: 20210624
